FAERS Safety Report 8361253-0 (Version None)
Quarter: 2012Q2

REPORT INFORMATION
  Report Type: 
  Country: None (occurrence: None)
  Receive Date: 20120515
  Receipt Date: 20110727
  Transmission Date: 20120825
  Serious: No
  Sender: FDA-Public Use
  Company Number: US-ALEXION-A201101162

PATIENT
  Sex: Female

DRUGS (7)
  1. SOLIRIS [Suspect]
     Indication: PAROXYSMAL NOCTURNAL HAEMOGLOBINURIA
     Dosage: 600 MG, QW
     Route: 042
     Dates: start: 20110629
  2. WARFARIN SODIUM [Concomitant]
     Indication: PROPHYLAXIS
     Dosage: UNK
  3. IRON [Concomitant]
     Dosage: UNK
  4. FOLIC ACID [Concomitant]
     Dosage: UNK
  5. SOLIRIS [Suspect]
     Dosage: 900 MG, Q2W
     Route: 042
     Dates: start: 20110727
  6. COREG [Concomitant]
     Indication: HYPERTENSION
     Dosage: UNK
  7. VITAMIN D [Concomitant]
     Dosage: UNK

REACTIONS (1)
  - CENTRAL VENOUS CATHETERISATION [None]
